FAERS Safety Report 6624942-1 (Version None)
Quarter: 2010Q1

REPORT INFORMATION
  Report Type: 
  Country: None (occurrence: None)
  Receive Date: 20100310
  Receipt Date: 20090917
  Transmission Date: 20100710
  Serious: No
  Sender: FDA-Public Use
  Company Number: US-BIOGENIDEC-2009BI029764

PATIENT
  Age: 56 Year
  Sex: Female

DRUGS (3)
  1. AVONEX [Suspect]
     Indication: MULTIPLE SCLEROSIS
     Route: 030
     Dates: start: 20020101, end: 20070801
  2. AVONEX [Suspect]
     Route: 030
     Dates: start: 20070801
  3. FLU SHOT [Concomitant]
     Indication: INFLUENZA IMMUNISATION
     Route: 030
     Dates: start: 20090916

REACTIONS (3)
  - FATIGUE [None]
  - MOBILITY DECREASED [None]
  - MUSCLE SPASMS [None]
